FAERS Safety Report 18062292 (Version 2)
Quarter: 2020Q3

REPORT INFORMATION
  Report Type: Spontaneous
  Country: US (occurrence: US)
  Receive Date: 20200723
  Receipt Date: 20200818
  Transmission Date: 20201103
  Serious: No
  Sender: FDA-Public Use
  Company Number: US-ASTRAZENECA-2020SE90325

PATIENT
  Sex: Male
  Weight: 120.7 kg

DRUGS (2)
  1. TOUJEO [Concomitant]
     Active Substance: INSULIN GLARGINE
  2. BYDUREON BCISE [Suspect]
     Active Substance: EXENATIDE
     Indication: TYPE 2 DIABETES MELLITUS
     Route: 058
     Dates: start: 20200705

REACTIONS (5)
  - Wrong technique in device usage process [Unknown]
  - Intentional device misuse [Unknown]
  - Drug dose omission by device [Unknown]
  - Device leakage [Unknown]
  - Glycosylated haemoglobin abnormal [Unknown]
